FAERS Safety Report 9513807 (Version 1)
Quarter: 2013Q1

REPORT INFORMATION
  Report Type: Spontaneous
  Country: US (occurrence: None)
  Receive Date: 20130305
  Receipt Date: 20130305
  Transmission Date: 20140127
  Serious: Yes (Other)
  Sender: FDA-Public Use
  Company Number: 163-21880-12043082

PATIENT
  Age: 71 Year
  Sex: Female
  Weight: 64.86 kg

DRUGS (13)
  1. REVLIMID (LENALIDOMIDE) (25 MILLIGRAM, CAPSULES) [Suspect]
     Indication: PLASMA CELL MYELOMA
     Dosage: FOR 21 DAYS
     Route: 048
     Dates: start: 200910, end: 201001
  2. ZOMETA (ZOLEDRONIC ACID) [Concomitant]
  3. VITAMIN D (ERGOCALCIFEROL [Concomitant]
  4. SYNTHROID (LEVOTHYROXINE SODIUM) [Concomitant]
  5. PRIMIDONE (PRIMIDONE) [Concomitant]
  6. PRAVASTATIN (PRAVASTATIN) [Concomitant]
  7. METOPROLOL (METOPROLOL) [Concomitant]
  8. KLOR-CON (POTASSIUM CHLORIDE) [Concomitant]
  9. GABAPENTIN (GABAPENTIN) [Concomitant]
  10. ASPIRIN (ACETYLSALICYLIC ACID) [Concomitant]
  11. CYMBALTA (DULOXETINE HYDROCHLORIDE) [Concomitant]
  12. DIGOXIN (DIGOXIN) [Concomitant]
  13. DECADRON (DEXAMETHASONE) [Concomitant]

REACTIONS (1)
  - Deep vein thrombosis [None]
